FAERS Safety Report 14346502 (Version 2)
Quarter: 2018Q1

REPORT INFORMATION
  Report Type: Spontaneous
  Country: US (occurrence: US)
  Receive Date: 20180103
  Receipt Date: 20180108
  Transmission Date: 20180509
  Serious: Yes (Hospitalization)
  Sender: FDA-Public Use
  Company Number: US-UCBSA-2017053344

PATIENT
  Age: 10 Month
  Sex: Male

DRUGS (1)
  1. LEVETIRACETAM. [Suspect]
     Active Substance: LEVETIRACETAM
     Indication: SEIZURE
     Dosage: UNKNOWN DOSE

REACTIONS (5)
  - Clonus [Unknown]
  - Extensor plantar response [Unknown]
  - Off label use [Unknown]
  - Ballismus [Recovered/Resolved]
  - Hemiparesis [Recovered/Resolved]
